FAERS Safety Report 7729860-3 (Version None)
Quarter: 2011Q3

REPORT INFORMATION
  Report Type: 
  Country: None (occurrence: None)
  Receive Date: 20110906
  Receipt Date: 20110829
  Transmission Date: 20111222
  Serious: Yes (Other)
  Sender: FDA-Public Use
  Company Number: BR-BAYER-2011-078542

PATIENT
  Age: 33 Year
  Sex: Female
  Weight: 82 kg

DRUGS (2)
  1. LEVOTHYROXINE SODIUM [Concomitant]
     Indication: HYPOTHYROIDISM
     Dosage: 1 DF, QD
     Route: 048
     Dates: start: 19810101
  2. MIRENA [Suspect]
     Indication: MENSTRUAL DISORDER
     Dosage: 20 ?G, CONT
     Route: 015
     Dates: start: 20090414

REACTIONS (2)
  - MENSTRUATION IRREGULAR [None]
  - THYROID CANCER [None]
